FAERS Safety Report 9240465 (Version 1)
Quarter: 2013Q2

REPORT INFORMATION
  Report Type: Spontaneous
  Country: US (occurrence: None)
  Receive Date: 20130412
  Receipt Date: 20130412
  Transmission Date: 20140414
  Serious: Yes (Other)
  Sender: FDA-Public Use
  Company Number: GAM-080-13-ES

PATIENT
  Age: 74 Year
  Sex: Female

DRUGS (15)
  1. OCTAGAMOCTA [Suspect]
     Indication: HISTIOCYTOSIS HAEMATOPHAGIC
     Dosage: 1000 MG/KG (1X1/D) INTRAVENOUS (NOT OTHERWISE SPECIFIED)
     Route: 042
     Dates: start: 20130316, end: 20130316
  2. CORTICOSTEROID NOS [Concomitant]
  3. FUROSEMIDE [Concomitant]
  4. IRBESARTAN [Concomitant]
  5. VITAMIN K [Concomitant]
  6. FOLIC ACID [Concomitant]
  7. VITAMIN B12 [Concomitant]
  8. METHYLPREDNISOLONE [Concomitant]
  9. DILTIAZEM [Concomitant]
  10. RANITIDINE [Concomitant]
  11. ALBUMIN [Concomitant]
  12. ISONIAZID [Concomitant]
  13. PYRAZINAMIDE [Concomitant]
  14. RIFAMPIN [Concomitant]
  15. LEVOFLOXACIN [Concomitant]

REACTIONS (4)
  - Angina pectoris [None]
  - Hyperhidrosis [None]
  - Dyspnoea [None]
  - Multi-organ failure [None]
